FAERS Safety Report 7211314-4 (Version None)
Quarter: 2010Q4

REPORT INFORMATION
  Report Type: 
  Country: None (occurrence: None)
  Receive Date: 20101228
  Receipt Date: 20101210
  Transmission Date: 20110411
  Serious: Yes (Hospitalization)
  Sender: FDA-Public Use
  Company Number: ALD1-JP-2010-0064

PATIENT
  Age: 68 Year
  Sex: Male

DRUGS (10)
  1. ALDOMET [Suspect]
     Indication: HYPERTENSION
     Dosage: 500 MG, ORAL
     Route: 048
     Dates: start: 20090508, end: 20101122
  2. BLOPRESS (CANDESARTAN CILEXETIL) [Concomitant]
  3. NORVASC OD (AMLODIPINE BESILATE) [Concomitant]
  4. ASPIRIN [Concomitant]
  5. NOVOLOG [Concomitant]
  6. LEVEMIR INNOLET (INSULIN BETEMIR) [Concomitant]
  7. RABEPRAZOLE SODIUM [Concomitant]
  8. PLETAAL OD (CILOSTAZOL) [Concomitant]
  9. LIPITOR [Concomitant]
  10. PRORENAL (LIMAPROST) [Concomitant]

REACTIONS (1)
  - HAEMOLYTIC ANAEMIA [None]
